FAERS Safety Report 14010018 (Version 4)
Quarter: 2018Q1

REPORT INFORMATION
  Report Type: Report from Study
  Country: GB (occurrence: GB)
  Receive Date: 20170925
  Receipt Date: 20180114
  Transmission Date: 20180508
  Serious: Yes (Other)
  Sender: FDA-Public Use
  Company Number: PHHY2017GB140302

PATIENT
  Age: 52 Year
  Sex: Male
  Weight: 97.5 kg

DRUGS (3)
  1. COSENTYX [Suspect]
     Active Substance: SECUKINUMAB
     Indication: PSORIATIC ARTHROPATHY
     Dosage: 300 MG, QW
     Route: 058
     Dates: start: 20170901
  2. COSENTYX [Suspect]
     Active Substance: SECUKINUMAB
     Indication: RHEUMATOID ARTHRITIS
     Dosage: 300 MG, QMO
     Route: 058
  3. LYMECYCLINE [Concomitant]
     Active Substance: LYMECYCLINE
     Indication: PROPHYLAXIS
     Dosage: 408 MG, QD
     Route: 065
     Dates: start: 20170623

REACTIONS (3)
  - Lower respiratory tract infection [Recovered/Resolved]
  - Product use in unapproved indication [Unknown]
  - Pneumonia [Unknown]

NARRATIVE: CASE EVENT DATE: 20170906
